FAERS Safety Report 6617264-6 (Version None)
Quarter: 2010Q1

REPORT INFORMATION
  Report Type: 
  Country: None (occurrence: None)
  Receive Date: 20100307
  Receipt Date: 20090731
  Transmission Date: 20100710
  Serious: No
  Sender: FDA-Public Use
  Company Number: JP-BAYER-200912453BYL

PATIENT
  Sex: Male

DRUGS (2)
  1. NEXAVAR [Suspect]
     Indication: RENAL CANCER
     Route: 048
  2. CARPERITIDE(GENETICAL RECOMBINATION) [Concomitant]
     Indication: CARDIAC FAILURE
     Route: 042

REACTIONS (3)
  - DYSPNOEA [None]
  - LUNG ABSCESS [None]
  - SEPSIS [None]
